FAERS Safety Report 15899736 (Version 1)
Quarter: 2019Q1

REPORT INFORMATION
  Report Type: Spontaneous
  Country: US (occurrence: US)
  Receive Date: 20190201
  Receipt Date: 20190201
  Transmission Date: 20190417
  Serious: No
  Sender: FDA-Public Use
  Company Number: US-PFIZER INC-2019048561

PATIENT

DRUGS (9)
  1. DOCETAXEL. [Suspect]
     Active Substance: DOCETAXEL
     Dosage: UNK
     Dates: start: 201509, end: 201512
  2. DOCETAXEL SANDOZ [Suspect]
     Active Substance: DOCETAXEL
     Dosage: UNK
     Dates: start: 201509, end: 201512
  3. DOCETAXEL ACTAVIS [Suspect]
     Active Substance: DOCETAXEL
     Dosage: UNK
     Dates: start: 201509, end: 201512
  4. DOCETAXEL. [Suspect]
     Active Substance: DOCETAXEL
     Dosage: UNK
     Dates: start: 201509, end: 201512
  5. TAXOTERE [Suspect]
     Active Substance: DOCETAXEL
     Dosage: UNK
     Dates: start: 201509, end: 201512
  6. DOCETAXEL MCKESSON [Suspect]
     Active Substance: DOCETAXEL
     Dosage: UNK
     Dates: start: 201509, end: 201512
  7. DOCETAXEL SAGENT [Suspect]
     Active Substance: DOCETAXEL
     Dosage: UNK
     Dates: start: 201509, end: 201512
  8. DOCETAXEL ACCORD [Suspect]
     Active Substance: DOCETAXEL
     Dosage: UNK
     Dates: start: 201509, end: 201512
  9. DOCETAXEL SUN [Suspect]
     Active Substance: DOCETAXEL
     Dosage: UNK
     Dates: start: 201509, end: 201512

REACTIONS (3)
  - Madarosis [Unknown]
  - Emotional disorder [Unknown]
  - Alopecia [Unknown]
